FAERS Safety Report 7028184-X (Version None)
Quarter: 2010Q4

REPORT INFORMATION
  Report Type: 
  Country: None (occurrence: None)
  Receive Date: 20101005
  Receipt Date: 20100929
  Transmission Date: 20110411
  Serious: Yes (Death, Other)
  Sender: FDA-Public Use
  Company Number: ES-CELGENEUS-144-50794-10092860

PATIENT
  Age: 74 Year
  Sex: Male

DRUGS (3)
  1. VIDAZA [Suspect]
     Route: 050
     Dates: start: 20100115, end: 20100222
  2. VIDAZA [Suspect]
  3. ONDASETRON [Concomitant]
     Route: 065

REACTIONS (3)
  - ACUTE MYELOID LEUKAEMIA [None]
  - ISCHAEMIC CARDIOMYOPATHY [None]
  - TEMPORAL ARTERITIS [None]
